FAERS Safety Report 6556739-5 (Version None)
Quarter: 2010Q1

REPORT INFORMATION
  Report Type: 
  Country: None (occurrence: None)
  Receive Date: 20100128
  Receipt Date: 20100118
  Transmission Date: 20100710
  Serious: Yes (Other)
  Sender: FDA-Public Use
  Company Number: FR-PFIZER INC-2010006803

PATIENT
  Age: 38 Year
  Sex: Male
  Weight: 77 kg

DRUGS (2)
  1. DOSTINEX [Suspect]
     Indication: PROLACTINOMA
     Dosage: 0.5 MG TWICE PER WEEK
     Route: 048
     Dates: start: 20060601
  2. ANDROTARDYL [Suspect]
     Indication: HYPOGONADISM
     Dosage: 250 MG, EVERY 3 WEEKS
     Route: 030
     Dates: start: 20060601

REACTIONS (1)
  - GRAND MAL CONVULSION [None]
